FAERS Safety Report 12707634 (Version 1)
Quarter: 2016Q3

REPORT INFORMATION
  Report Type: Report from Study
  Country: CO (occurrence: CO)
  Receive Date: 20160901
  Receipt Date: 20160901
  Transmission Date: 20161109
  Serious: Yes (Death, Life-Threatening)
  Sender: FDA-Public Use
  Company Number: CO-AMGEN-COLSL2016091125

PATIENT
  Age: 56 Year
  Sex: Female

DRUGS (1)
  1. VECTIBIX [Suspect]
     Active Substance: PANITUMUMAB
     Indication: COLORECTAL CANCER METASTATIC
     Dosage: 228 MG, Q2WK (FORTNIGHTLY)
     Route: 042
     Dates: start: 20150107, end: 20160704

REACTIONS (5)
  - Mobility decreased [Unknown]
  - Pain in extremity [Not Recovered/Not Resolved]
  - Death [Fatal]
  - Arthralgia [Not Recovered/Not Resolved]
  - Gait disturbance [Not Recovered/Not Resolved]

NARRATIVE: CASE EVENT DATE: 20160803
